FAERS Safety Report 7352380-5 (Version None)
Quarter: 2011Q1

REPORT INFORMATION
  Report Type: 
  Country: None (occurrence: None)
  Receive Date: 20110309
  Receipt Date: 20110309
  Transmission Date: 20110831
  Serious: Yes (Other)
  Sender: FDA-Public Use
  Company Number: None

PATIENT
  Age: 10 Year
  Sex: Female
  Weight: 41.2773 kg

DRUGS (1)
  1. XOPENEX [Suspect]
     Indication: ASTHMA
     Dates: start: 20100628, end: 20101230

REACTIONS (1)
  - PRODUCT EXPIRATION DATE ISSUE [None]
